FAERS Safety Report 10557684 (Version 2)
Quarter: 2014Q4

REPORT INFORMATION
  Report Type: Report from Study
  Country: US (occurrence: US)
  Receive Date: 20141031
  Receipt Date: 20141213
  Transmission Date: 20150529
  Serious: Yes (Hospitalization)
  Sender: FDA-Public Use
  Company Number: US-ELI_LILLY_AND_COMPANY-US201410007989

PATIENT
  Age: 58 Year
  Sex: Male
  Weight: 61.22 kg

DRUGS (1)
  1. OLANZAPINE LONG-ACTING IM [Suspect]
     Active Substance: OLANZAPINE PAMOATE
     Indication: SCHIZOPHRENIA
     Dosage: 405 MG, UNK
     Route: 030
     Dates: start: 20141017

REACTIONS (10)
  - Tachycardia [Unknown]
  - Hypertension [Unknown]
  - Seizure [Not Recovered/Not Resolved]
  - Acute kidney injury [Unknown]
  - Depressed level of consciousness [Unknown]
  - Hypertensive emergency [Unknown]
  - Sedation [Unknown]
  - Asthenia [Unknown]
  - Urinary retention [Unknown]
  - Acute myocardial infarction [Unknown]

NARRATIVE: CASE EVENT DATE: 20141017
